FAERS Safety Report 10230026 (Version 1)
Quarter: 2014Q2

REPORT INFORMATION
  Report Type: Spontaneous
  Country: US (occurrence: US)
  Receive Date: 20140611
  Receipt Date: 20140611
  Transmission Date: 20141212
  Serious: No
  Sender: FDA-Public Use
  Company Number: US-ABBVIE-13P-163-1111051-00

PATIENT
  Age: 56 Year
  Sex: Female
  Weight: 95.34 kg

DRUGS (3)
  1. K-TAB [Suspect]
     Indication: BLOOD POTASSIUM DECREASED
     Dates: start: 201306
  2. SINGULAIR [Concomitant]
     Indication: ASTHMA
  3. FUROSEMIDE [Concomitant]
     Indication: DIURETIC THERAPY

REACTIONS (1)
  - Blood glucose increased [Not Recovered/Not Resolved]
